FAERS Safety Report 14367138 (Version 3)
Quarter: 2018Q4

REPORT INFORMATION
  Report Type: Spontaneous
  Country: FI (occurrence: FI)
  Receive Date: 20180109
  Receipt Date: 20181008
  Transmission Date: 20190204
  Serious: Yes (Disabling)
  Sender: FDA-Public Use
  Company Number: FI-BAYER-2017-251283

PATIENT
  Age: 35 Year
  Sex: Female

DRUGS (2)
  1. MIRENA [Suspect]
     Active Substance: LEVONORGESTREL
     Indication: PRODUCT USED FOR UNKNOWN INDICATION
  2. MIRENA [Suspect]
     Active Substance: LEVONORGESTREL
     Indication: PRODUCT USED FOR UNKNOWN INDICATION
     Dosage: 20 MCG/24HR, CONT
     Route: 015

REACTIONS (9)
  - Menstrual disorder [Recovering/Resolving]
  - Muscular weakness [Recovering/Resolving]
  - Oedema [Recovering/Resolving]
  - Inflammation [Recovering/Resolving]
  - Uterine infection [Recovering/Resolving]
  - Vaginal haemorrhage [Recovering/Resolving]
  - Swelling [Recovering/Resolving]
  - Fatigue [Recovering/Resolving]
  - Fatigue [Recovering/Resolving]

NARRATIVE: CASE EVENT DATE: 20161123
